FAERS Safety Report 4279281-3 (Version None)
Quarter: 2004Q1

REPORT INFORMATION
  Report Type: 
  Country: None (occurrence: None)
  Receive Date: 20040127
  Receipt Date: 20031209
  Transmission Date: 20041129
  Serious: Yes (Hospitalization)
  Sender: FDA-Public Use
  Company Number: FR-BRISTOL-MYERS SQUIBB COMPANY-12453767

PATIENT
  Age: 62 Year
  Sex: Male

DRUGS (3)
  1. TAXOL [Suspect]
     Indication: BLADDER CANCER
     Dosage: THERAPY DATES: 30-MAR-2003 TO 21-NOV-2003
     Route: 042
     Dates: start: 20031121, end: 20031121
  2. CISPLATIN [Suspect]
     Indication: BLADDER CANCER
     Dosage: THERAPY DATES: 30-MAR-2003 TO 14-NOV-2003
     Route: 042
     Dates: start: 20031114, end: 20031114
  3. GEMCITABINE [Suspect]
     Indication: BLADDER CANCER
     Dosage: THERAPY DATES: 30-MAR-2003 TO 21-NOV-2003
     Route: 042
     Dates: start: 20031121, end: 20031121

REACTIONS (1)
  - FEBRILE BONE MARROW APLASIA [None]
